FAERS Safety Report 16608559 (Version 2)
Quarter: 2019Q3

REPORT INFORMATION
  Report Type: Spontaneous
  Country: JP (occurrence: JP)
  Receive Date: 20190722
  Receipt Date: 20190806
  Transmission Date: 20191004
  Serious: Yes (Life-Threatening, Hospitalization, Other)
  Sender: FDA-Public Use
  Company Number: JP-ASTRAZENECA-2019SF04468

PATIENT
  Age: 71 Year
  Sex: Female

DRUGS (3)
  1. QUETIAPINE. [Suspect]
     Active Substance: QUETIAPINE
     Indication: AFFECTIVE DISORDER
     Route: 065
     Dates: start: 20180817
  2. QUETIAPINE. [Suspect]
     Active Substance: QUETIAPINE
     Indication: AFFECTIVE DISORDER
     Route: 065
     Dates: start: 201802, end: 201806
  3. SULPIRIDE [Suspect]
     Active Substance: SULPIRIDE
     Indication: AFFECTIVE DISORDER
     Route: 048
     Dates: start: 2018, end: 20180817

REACTIONS (5)
  - Off label use [Unknown]
  - Insomnia [Unknown]
  - Acute kidney injury [Recovering/Resolving]
  - Neuroleptic malignant syndrome [Recovering/Resolving]
  - Diabetes mellitus [Unknown]
